FAERS Safety Report 4543850-3 (Version None)
Quarter: 2005Q1

REPORT INFORMATION
  Report Type: 
  Country: None (occurrence: None)
  Receive Date: 20050103
  Receipt Date: 20040830
  Transmission Date: 20050727
  Serious: Yes (Congenital Anomaly, Other)
  Sender: FDA-Public Use
  Company Number: GXKR2004FI00619

PATIENT
  Age: 1 Year
  Sex: Male

DRUGS (4)
  1. BISOPROLOL (NGX) (BISOPROLOL) UNKNOWN [Suspect]
     Dosage: 5 MG, QD, TRANSPLACENTAL
     Route: 064
  2. SUMATRIPTAN (NGX) (SUMATRIPTAN) UNKNOWN [Suspect]
     Dosage: 100 MG, QW
  3. NAPROXEN [Suspect]
     Dosage: 1100 MG, QW, TRANSPLACENTAL
     Route: 064
  4. ACETAMINOPHEN [Suspect]

REACTIONS (9)
  - BREECH PRESENTATION [None]
  - CAESAREAN SECTION [None]
  - CLEFT LIP AND PALATE [None]
  - CONGENITAL ANOMALY [None]
  - DRUG EXPOSURE DURING PREGNANCY [None]
  - FACIAL DYSMORPHISM [None]
  - HYPERTELORISM OF ORBIT [None]
  - PARESIS [None]
  - TOE DEFORMITY [None]
